FAERS Safety Report 19442057 (Version 1)
Quarter: 2021Q2

REPORT INFORMATION
  Report Type: Spontaneous
  Country: US (occurrence: US)
  Receive Date: 20210618
  Receipt Date: 20210618
  Transmission Date: 20210717
  Serious: Yes (Hospitalization)
  Sender: FDA-Public Use
  Company Number: None

PATIENT
  Age: 64 Year
  Sex: Male
  Weight: 91.95 kg

DRUGS (3)
  1. CARBOPLATIN. [Suspect]
     Active Substance: CARBOPLATIN
     Dates: end: 20201230
  2. DURVALUMAB (MED[4736) [Suspect]
     Active Substance: DURVALUMAB
     Dates: end: 20210505
  3. TAXOL [Suspect]
     Active Substance: PACLITAXEL
     Dates: end: 20201230

REACTIONS (10)
  - Lung infiltration [None]
  - Sputum discoloured [None]
  - Cough [None]
  - Fatigue [None]
  - Hypoxia [None]
  - Dyspnoea [None]
  - Oxygen saturation decreased [None]
  - Chest discomfort [None]
  - Pleural effusion [None]
  - Oesophageal stenosis [None]

NARRATIVE: CASE EVENT DATE: 20210513
